FAERS Safety Report 5377862-7 (Version None)
Quarter: 2007Q2

REPORT INFORMATION
  Report Type: 
  Country: None (occurrence: None)
  Receive Date: 20070629
  Receipt Date: 20070614
  Transmission Date: 20071010
  Serious: Yes (Death, Hospitalization)
  Sender: FDA-Public Use
  Company Number: 2007EN000051

PATIENT
  Age: 0 Year
  Sex: Female
  Weight: 2.41 kg

DRUGS (13)
  1. ABELCET [Suspect]
     Indication: FUNGAL SEPSIS
     Dosage: SEE IMAGE
     Route: 042
     Dates: end: 20070620
  2. ABELCET [Suspect]
     Indication: FUNGAL SEPSIS
     Dosage: SEE IMAGE
     Route: 042
     Dates: start: 20070605
  3. DOBUTAMINE HCL [Concomitant]
  4. DOPAMINE HCL [Concomitant]
  5. FUROSEMIDE [Concomitant]
  6. ALBUMIN (HUMAN) [Concomitant]
  7. HYDROCORTISONE [Concomitant]
  8. DEXAMETHASONE [Concomitant]
  9. FENTANYL [Concomitant]
  10. VERSED [Concomitant]
  11. PHENOBARBITAL TAB [Concomitant]
  12. VANCOMYCIN [Concomitant]
  13. TPN [Concomitant]

REACTIONS (4)
  - ORGAN FAILURE [None]
  - RENAL FAILURE ACUTE [None]
  - RENAL IMPAIRMENT [None]
  - SEPSIS [None]
